FAERS Safety Report 12066960 (Version 1)
Quarter: 2016Q1

REPORT INFORMATION
  Report Type: Spontaneous
  Country: FR (occurrence: FR)
  Receive Date: 20160211
  Receipt Date: 20160211
  Transmission Date: 20160526
  Serious: Yes (Other)
  Sender: FDA-Public Use
  Company Number: FR-TOLMAR, INC.-2015FR000966

PATIENT
  Age: 75 Year
  Sex: Male
  Weight: 95 kg

DRUGS (7)
  1. ELIGARD [Suspect]
     Active Substance: LEUPROLIDE ACETATE
     Indication: PROSTATE CANCER
     Dosage: 45 MG, EVERY 6 MONTHS
     Route: 058
     Dates: start: 201306
  2. SOLUPRED                           /00016201/ [Concomitant]
     Active Substance: PREDNISOLONE
  3. ELIGARD [Suspect]
     Active Substance: LEUPROLIDE ACETATE
     Dosage: 1 DF, CYCLIC (EVERY 6 MONTHS)
     Route: 058
     Dates: start: 201312
  4. ZYTIGA [Concomitant]
     Active Substance: ABIRATERONE ACETATE
  5. LERCANIDIPINE [Concomitant]
     Active Substance: LERCANIDIPINE
  6. ELIGARD [Suspect]
     Active Substance: LEUPROLIDE ACETATE
     Dosage: 1 DF, EVERY 6 MONTHS
     Route: 058
     Dates: start: 20141216
  7. ELIGARD [Suspect]
     Active Substance: LEUPROLIDE ACETATE
     Dosage: 1 DF, CYCLIC (EVERY 6 MONTHS)
     Route: 058
     Dates: start: 201405

REACTIONS (4)
  - Hot flush [Not Recovered/Not Resolved]
  - Prostatic specific antigen increased [Recovered/Resolved]
  - Product reconstitution issue [Unknown]
  - Wrong technique in product usage process [Unknown]

NARRATIVE: CASE EVENT DATE: 20130711
